FAERS Safety Report 25952628 (Version 2)
Quarter: 2025Q4

REPORT INFORMATION
  Report Type: Report from Study
  Country: CA (occurrence: CA)
  Receive Date: 20251023
  Receipt Date: 20251117
  Transmission Date: 20260118
  Serious: Yes (Life-Threatening, Hospitalization)
  Sender: AMGEN
  Company Number: CA-AMGEN-CANSL2025207251

PATIENT
  Sex: Female

DRUGS (1)
  1. ADALIMUMAB [Suspect]
     Active Substance: ADALIMUMAB
     Indication: Rheumatoid arthritis
     Dosage: 40 MILLIGRAM, QWK
     Route: 065
     Dates: start: 20210912

REACTIONS (4)
  - Osteomyelitis [Unknown]
  - Intervertebral discitis [Unknown]
  - Sepsis [Unknown]
  - Urinary tract infection [Unknown]
